FAERS Safety Report 4905468-X (Version None)
Quarter: 2006Q1

REPORT INFORMATION
  Report Type: 
  Country: None (occurrence: None)
  Receive Date: 20060203
  Receipt Date: 20060130
  Transmission Date: 20060701
  Serious: Yes (Death, Other)
  Sender: FDA-Public Use
  Company Number: TPA2006A00169

PATIENT
  Age: 40 Year
  Sex: Male

DRUGS (3)
  1. PIOGLITAZONE HCL [Suspect]
     Indication: SARCOMA
     Dosage: 45 MG, 1 IN 1 D, PER ORAL
     Route: 048
  2. ROFECOXIB (ROFECOXIB) (25 MILLIGRAM) [Suspect]
     Indication: SARCOMA
     Dosage: 25 MG, 1 IN 1 D, PER ORAL
     Route: 048
  3. TROFOSFAMIDE (TROFOSAMIDE) (50 MILLIGRAM) [Suspect]
     Indication: SARCOMA
     Dosage: 50 MG, 3 IN 1 D, PER ORAL
     Route: 048

REACTIONS (2)
  - LEIOMYOSARCOMA METASTATIC [None]
  - MALIGNANT NEOPLASM PROGRESSION [None]
